FAERS Safety Report 22063947 (Version 1)
Quarter: 2023Q1

REPORT INFORMATION
  Report Type: Spontaneous
  Country: US (occurrence: None)
  Receive Date: 20230303
  Receipt Date: 20230303
  Transmission Date: 20230418
  Serious: Yes (Hospitalization)
  Sender: FDA-Public Use
  Company Number: None

PATIENT
  Age: 45 Year
  Sex: Female
  Weight: 135 kg

DRUGS (19)
  1. PAXLOVID [Suspect]
     Active Substance: NIRMATRELVIR\RITONAVIR
     Indication: COVID-19
     Dosage: FREQUENCY : TWICE A DAY;?
     Route: 048
     Dates: start: 20230207, end: 20230212
  2. LISINOPRIL [Concomitant]
     Active Substance: LISINOPRIL
  3. SPIRONOLACTONE [Concomitant]
     Active Substance: SPIRONOLACTONE
  4. HYDROCHLOROTHIAZIDE [Concomitant]
     Active Substance: HYDROCHLOROTHIAZIDE
  5. METOPROLOL SUCCINATE [Concomitant]
     Active Substance: METOPROLOL SUCCINATE
  6. LEVOTHYROXINE [Concomitant]
     Active Substance: LEVOTHYROXINE
  7. BUSPIRONE [Concomitant]
     Active Substance: BUSPIRONE HYDROCHLORIDE
  8. DULOXETINE [Concomitant]
     Active Substance: DULOXETINE
  9. LAMOTRIGINE [Concomitant]
     Active Substance: LAMOTRIGINE
  10. DICLOFENAC [Concomitant]
     Active Substance: DICLOFENAC
  11. OMEPRAZOLE [Concomitant]
     Active Substance: OMEPRAZOLE
  12. VITAMIN D [Concomitant]
     Active Substance: VITAMIN D NOS
  13. VITAMIN B12 [Concomitant]
     Active Substance: CYANOCOBALAMIN
  14. FIBER [Concomitant]
  15. PROBIOTICS NOS [Concomitant]
     Active Substance: PROBIOTICS NOS
  16. CALCIUM [Concomitant]
     Active Substance: CALCIUM
  17. MAGNESIUM [Concomitant]
     Active Substance: MAGNESIUM
  18. ZINC [Concomitant]
     Active Substance: ZINC
  19. SENNA [Concomitant]
     Active Substance: SENNA LEAF\SENNOSIDES\SENNOSIDES A AND B

REACTIONS (2)
  - Tachycardia [None]
  - Chest pain [None]

NARRATIVE: CASE EVENT DATE: 20230213
